FAERS Safety Report 9119988 (Version 1)
Quarter: 2013Q1

REPORT INFORMATION
  Report Type: Spontaneous
  Country: BG (occurrence: None)
  Receive Date: 20130130
  Receipt Date: 20130130
  Transmission Date: 20140127
  Serious: Yes (Hospitalization)
  Sender: FDA-Public Use
  Company Number: NSR_00792_2013

PATIENT
  Age: 21 Year
  Sex: Female

DRUGS (3)
  1. BACLOFEN (BACLOFEN) (BACLOFEN) [Suspect]
     Dosage: (DF  [INTENTIONAL OVERDOSE])?(UNKNOWN UNTIL NOT CONTINUING)
  2. THIORIDAZINE [Suspect]
     Dosage: (DF  [INTENTIONAL OVERDOSE])?(UNKNOWN  UNTIL NOT CONTINUING)
  3. LISINOPRIL [Suspect]
     Dosage: (DF  [INTENTIONAL OVERDOSE])?(UNKNOWN  UNTIL NOT CONTINUING)

REACTIONS (1)
  - Poisoning deliberate [None]
